FAERS Safety Report 16727796 (Version 2)
Quarter: 2020Q3

REPORT INFORMATION
  Report Type: Spontaneous
  Country: NL (occurrence: NL)
  Receive Date: 20190822
  Receipt Date: 20200805
  Transmission Date: 20201102
  Serious: Yes (Death, Hospitalization)
  Sender: FDA-Public Use
  Company Number: NL-BEH-2019105763

PATIENT
  Age: 35 Year
  Sex: Female

DRUGS (21)
  1. HAEMATE P [Suspect]
     Active Substance: ANTIHEMOPHILIC FACTOR HUMAN
     Indication: VAGINAL HAEMORRHAGE
     Dosage: 500 INTERNATIONAL UNIT, BID
     Route: 065
     Dates: start: 20190716, end: 20190716
  2. HAEMATE P [Suspect]
     Active Substance: ANTIHEMOPHILIC FACTOR HUMAN
     Indication: ADENOCARCINOMA OF THE CERVIX
     Dosage: 1000 INTERNATIONAL UNIT, SINGLE
     Route: 065
     Dates: start: 20190716, end: 20190716
  3. HAEMATE P [Suspect]
     Active Substance: ANTIHEMOPHILIC FACTOR HUMAN
     Dosage: 500 INTERNATIONAL UNIT, BID
     Route: 065
     Dates: start: 20190809, end: 20190809
  4. HAEMATE P [Suspect]
     Active Substance: ANTIHEMOPHILIC FACTOR HUMAN
     Dosage: 1000 INTERNATIONAL UNIT, SINGLE
     Route: 065
     Dates: start: 20190806, end: 20190806
  5. HAEMATE P [Suspect]
     Active Substance: ANTIHEMOPHILIC FACTOR HUMAN
     Dosage: 1000 INTERNATIONAL UNIT, BID
     Route: 065
     Dates: start: 20190807, end: 20190807
  6. HAEMATE P [Suspect]
     Active Substance: ANTIHEMOPHILIC FACTOR HUMAN
     Dosage: 1000 INTERNATIONAL UNIT, SINGLE
     Route: 065
     Dates: start: 20190806, end: 20190806
  7. HAEMATE P [Suspect]
     Active Substance: ANTIHEMOPHILIC FACTOR HUMAN
     Dosage: 1000 INTERNATIONAL UNIT, BID
     Route: 065
     Dates: start: 20190808, end: 20190808
  8. HAEMATE P [Suspect]
     Active Substance: ANTIHEMOPHILIC FACTOR HUMAN
     Indication: VON WILLEBRAND^S DISEASE
     Dosage: 1000 INTERNATIONAL UNIT, TID
     Route: 065
     Dates: start: 20190716, end: 20190716
  9. HAEMATE P [Suspect]
     Active Substance: ANTIHEMOPHILIC FACTOR HUMAN
     Dosage: 1000 INTERNATIONAL UNIT, BID
     Route: 065
     Dates: start: 20190807, end: 20190807
  10. HAEMATE P [Suspect]
     Active Substance: ANTIHEMOPHILIC FACTOR HUMAN
     Dosage: 500 INTERNATIONAL UNIT, BID
     Route: 065
     Dates: start: 20190809, end: 20190809
  11. HAEMATE P [Suspect]
     Active Substance: ANTIHEMOPHILIC FACTOR HUMAN
     Indication: VON WILLEBRAND^S DISEASE
     Dosage: 1000 INTERNATIONAL UNIT, TID
     Route: 065
     Dates: start: 20190716, end: 20190716
  12. HAEMATE P [Suspect]
     Active Substance: ANTIHEMOPHILIC FACTOR HUMAN
     Indication: BIOPSY CERVIX
     Dosage: 1000 INTERNATIONAL UNIT, SINGLE
     Route: 065
     Dates: start: 20190716, end: 20190716
  13. HAEMATE P [Suspect]
     Active Substance: ANTIHEMOPHILIC FACTOR HUMAN
     Indication: BIOPSY CERVIX
     Dosage: 1000 INTERNATIONAL UNIT, SINGLE
     Route: 065
     Dates: start: 20190716, end: 20190716
  14. HAEMATE P [Suspect]
     Active Substance: ANTIHEMOPHILIC FACTOR HUMAN
     Dosage: 1000 INTERNATIONAL UNIT, QID
     Route: 065
     Dates: start: 20190806, end: 20190806
  15. HAEMATE P [Suspect]
     Active Substance: ANTIHEMOPHILIC FACTOR HUMAN
     Dosage: 1000 INTERNATIONAL UNIT, BID
     Route: 065
     Dates: start: 20190809, end: 20190809
  16. TRANEXAMIC ACID. [Concomitant]
     Active Substance: TRANEXAMIC ACID
     Dosage: 400 MILLIGRAM
  17. HAEMATE P [Suspect]
     Active Substance: ANTIHEMOPHILIC FACTOR HUMAN
     Indication: VAGINAL HAEMORRHAGE
     Dosage: 500 INTERNATIONAL UNIT, BID
     Route: 065
     Dates: start: 20190716, end: 20190716
  18. HAEMATE P [Suspect]
     Active Substance: ANTIHEMOPHILIC FACTOR HUMAN
     Indication: ADENOCARCINOMA OF THE CERVIX
     Dosage: 1000 INTERNATIONAL UNIT, SINGLE
     Route: 065
     Dates: start: 20190716, end: 20190716
  19. HAEMATE P [Suspect]
     Active Substance: ANTIHEMOPHILIC FACTOR HUMAN
     Dosage: 1000 INTERNATIONAL UNIT, QID
     Route: 065
     Dates: start: 20190806, end: 20190806
  20. HAEMATE P [Suspect]
     Active Substance: ANTIHEMOPHILIC FACTOR HUMAN
     Dosage: 1000 INTERNATIONAL UNIT, BID
     Route: 065
     Dates: start: 20190808, end: 20190808
  21. HAEMATE P [Suspect]
     Active Substance: ANTIHEMOPHILIC FACTOR HUMAN
     Dosage: 1000 INTERNATIONAL UNIT, BID
     Route: 065
     Dates: start: 20190809, end: 20190809

REACTIONS (5)
  - Post procedural haemorrhage [Fatal]
  - Haemorrhage [Fatal]
  - Vaginal haemorrhage [Fatal]
  - Adenocarcinoma of the cervix [Fatal]
  - Tumour necrosis [Fatal]

NARRATIVE: CASE EVENT DATE: 201907
